FAERS Safety Report 7759085 (Version 7)
Quarter: 2014Q1

REPORT INFORMATION
  Report Type: Spontaneous
  Country: AU (occurrence: None)
  Receive Date: 20101217
  Receipt Date: 20130314
  Transmission Date: 20141002
  Serious: Yes (Life-Threatening, Hospitalization, Other)
  Sender: FDA-Public Use
  Company Number: DSU-2010-05105

PATIENT
  Age: 42 Year
  Sex: Male
  Weight: 90 kg

DRUGS (3)
  1. OLMESARTAN MEDOXOMIL [Suspect]
     Indication: PRODUCT USED FOR UNKNOWN INDICATION
     Route: 048
     Dates: end: 200910
  2. OLMETEC PLUS (HYDROCHLOROTHIAZIDE, OLMESARTAN MEDOXOMIL) (TABLET) (HYDROCHLOROTHIAZIDE, OLMESARTAN MEDOXOMIL) [Suspect]
     Indication: HYPERTENSION
     Dosage: 40/12.5 MG (QD), PER ORAL
     Route: 048
     Dates: end: 2010
  3. ATENOLOL [Suspect]
     Indication: ISCHAEMIA
     Dates: end: 2010

REACTIONS (24)
  - Fatigue [None]
  - Nephrolithiasis [None]
  - Ischaemia [None]
  - Total lung capacity decreased [None]
  - Dyspnoea [None]
  - Syncope [None]
  - Productive cough [None]
  - Headache [None]
  - Weight increased [None]
  - Hypersomnia [None]
  - Lethargy [None]
  - Hyperhidrosis [None]
  - Tachycardia [None]
  - Blood pressure fluctuation [None]
  - Renal impairment [None]
  - Pneumonia [None]
  - Blood magnesium decreased [None]
  - Angiotensin converting enzyme increased [None]
  - Norepinephrine increased [None]
  - Fluid retention [None]
  - Atrioventricular block [None]
  - Pulmonary fibrosis [None]
  - Pulmonary hypertension [None]
  - Blood pressure inadequately controlled [None]
